FAERS Safety Report 25119839 (Version 1)
Quarter: 2025Q1

REPORT INFORMATION
  Report Type: Report from Study
  Country: US (occurrence: US)
  Receive Date: 20250325
  Receipt Date: 20250325
  Transmission Date: 20250408
  Serious: Yes (Other)
  Sender: EMD SERONO INC
  Company Number: US-Merck Healthcare KGaA-2025010218

PATIENT
  Sex: Female

DRUGS (1)
  1. MAVENCLAD [Suspect]
     Active Substance: CLADRIBINE
     Indication: Multiple sclerosis

REACTIONS (6)
  - Decreased immune responsiveness [Unknown]
  - Pneumonia [Unknown]
  - Sinusitis [Unknown]
  - Epilepsy [Unknown]
  - Trigeminal neuralgia [Unknown]
  - Occipital neuralgia [Unknown]
